FAERS Safety Report 5503641-3 (Version None)
Quarter: 2007Q4

REPORT INFORMATION
  Report Type: 
  Country: None (occurrence: None)
  Receive Date: 20071101
  Receipt Date: 20071022
  Transmission Date: 20080405
  Serious: Yes (Hospitalization)
  Sender: FDA-Public Use
  Company Number: PHHO2007DE16006

PATIENT
  Age: 56 Year
  Sex: Male

DRUGS (1)
  1. GLEEVEC [Suspect]
     Indication: BILE DUCT CANCER
     Dosage: 600 MG, QD
     Route: 048
     Dates: start: 20070820

REACTIONS (2)
  - LIVER ABSCESS [None]
  - SEPSIS [None]
